FAERS Safety Report 21534394 (Version 1)
Quarter: 2022Q4

REPORT INFORMATION
  Report Type: Spontaneous
  Country: US (occurrence: US)
  Receive Date: 20221101
  Receipt Date: 20221101
  Transmission Date: 20230113
  Serious: No
  Sender: FDA-Public Use
  Company Number: US-LANNETT COMPANY, INC.-US-2022LAN000132

PATIENT

DRUGS (3)
  1. BUPRENORPHINE HYDROCHLORIDE\NALOXONE HYDROCHLORIDE [Suspect]
     Active Substance: BUPRENORPHINE HYDROCHLORIDE\NALOXONE HYDROCHLORIDE
     Indication: Withdrawal syndrome
     Dosage: 8 MILLIGRAM, TID
     Route: 048
  2. BUPRENORPHINE HYDROCHLORIDE\NALOXONE HYDROCHLORIDE [Suspect]
     Active Substance: BUPRENORPHINE HYDROCHLORIDE\NALOXONE HYDROCHLORIDE
     Dosage: 2/0.5 MG,1 TABLET IN THE MORNING AND 1 AND HALF IN EVENING
     Route: 048
     Dates: start: 202201
  3. KLONOPIN [Concomitant]
     Active Substance: CLONAZEPAM
     Indication: Anxiety
     Dosage: UNK
     Route: 065

REACTIONS (10)
  - Abdominal pain upper [Unknown]
  - Palpitations [Unknown]
  - Psychomotor hyperactivity [Unknown]
  - Ageusia [Unknown]
  - Malaise [Unknown]
  - Feeling abnormal [Unknown]
  - Anxiety [Unknown]
  - Product dose omission issue [Unknown]
  - Product taste abnormal [Unknown]
  - Product complaint [Unknown]

NARRATIVE: CASE EVENT DATE: 20220101
